FAERS Safety Report 15409337 (Version 1)
Quarter: 2018Q3

REPORT INFORMATION
  Report Type: Spontaneous
  Country: GB (occurrence: GB)
  Receive Date: 20180920
  Receipt Date: 20180920
  Transmission Date: 20181010
  Serious: Yes (Hospitalization, Other)
  Sender: FDA-Public Use
  Company Number: PHHY2018GB102905

PATIENT

DRUGS (5)
  1. SODIUM VALPROATE [Concomitant]
     Active Substance: VALPROATE SODIUM
     Indication: SEIZURE
     Route: 065
  2. LEVETIRACETAM. [Suspect]
     Active Substance: LEVETIRACETAM
     Indication: SEIZURE
     Dosage: UNK
     Route: 065
  3. LAMICTAL [Concomitant]
     Active Substance: LAMOTRIGINE
     Indication: SEIZURE
     Dosage: UNK
     Route: 065
  4. TEGRETOL [Concomitant]
     Active Substance: CARBAMAZEPINE
     Indication: SEIZURE
     Dosage: UNK
     Route: 065
  5. ZONISAMIDE. [Concomitant]
     Active Substance: ZONISAMIDE
     Indication: SEIZURE
     Route: 065

REACTIONS (1)
  - Generalised tonic-clonic seizure [Unknown]
